FAERS Safety Report 9421712 (Version 7)
Quarter: 2016Q4

REPORT INFORMATION
  Report Type: Report from Study
  Country: BR (occurrence: BR)
  Receive Date: 20130726
  Receipt Date: 20161107
  Transmission Date: 20170207
  Serious: Yes (Other)
  Sender: FDA-Public Use
  Company Number: BR-ROCHE-774195

PATIENT
  Age: 38 Year
  Sex: Female
  Weight: 87 kg

DRUGS (21)
  1. MABTHERA [Suspect]
     Active Substance: RITUXIMAB
     Route: 042
     Dates: start: 20130819, end: 20130902
  2. CHLOROQUINE. [Concomitant]
     Active Substance: CHLOROQUINE
     Route: 065
  3. OMEPRAZOLE. [Concomitant]
     Active Substance: OMEPRAZOLE
     Route: 065
  4. MABTHERA [Suspect]
     Active Substance: RITUXIMAB
     Route: 042
     Dates: start: 20111221, end: 20120104
  5. ADEROGIL D3 [Concomitant]
     Route: 065
  6. FOLIC ACID. [Concomitant]
     Active Substance: FOLIC ACID
     Route: 065
  7. ARAVA [Concomitant]
     Active Substance: LEFLUNOMIDE
     Route: 065
  8. DEPURA [Concomitant]
     Active Substance: CHOLECALCIFEROL
     Dosage: 5 DROPS A DAY
     Route: 065
  9. ADALAT [Concomitant]
     Active Substance: NIFEDIPINE
     Route: 065
  10. MABTHERA [Suspect]
     Active Substance: RITUXIMAB
     Route: 042
     Dates: start: 20110510, end: 20110525
  11. RIVOTRIL [Concomitant]
     Active Substance: CLONAZEPAM
     Dosage: DOSE REPORTED AS 2 MG/TAB, ONE TABLET DAILY
     Route: 048
  12. METHOTREXATE. [Concomitant]
     Active Substance: METHOTREXATE
     Dosage: INDICATION: LUNGS GROUND GLASS INFILTRATE
     Route: 065
  13. NIFEDIPINE. [Concomitant]
     Active Substance: NIFEDIPINE
     Route: 065
  14. LOSARTAN. [Concomitant]
     Active Substance: LOSARTAN
     Route: 065
  15. MABTHERA [Suspect]
     Active Substance: RITUXIMAB
     Indication: RHEUMATOID ARTHRITIS
     Dosage: LAST INFUSION:21/AUG/2013?MOST RECENT INFUSION ON 17/MAR/2015
     Route: 042
  16. MABTHERA [Suspect]
     Active Substance: RITUXIMAB
     Route: 042
     Dates: start: 201008, end: 201105
  17. MABTHERA [Suspect]
     Active Substance: RITUXIMAB
     Route: 042
     Dates: start: 20120829, end: 20120912
  18. SERTRALINE [Concomitant]
     Active Substance: SERTRALINE HYDROCHLORIDE
     Route: 065
  19. CAPTOPRIL. [Concomitant]
     Active Substance: CAPTOPRIL
     Route: 065
  20. DORFLEX [Concomitant]
     Active Substance: CAFFEINE\DIPYRONE\ORPHENADRINE
  21. NOVALGIN [Concomitant]
     Active Substance: METAMIZOLE SODIUM

REACTIONS (27)
  - Pneumonia [Not Recovered/Not Resolved]
  - Hyperhidrosis [Not Recovered/Not Resolved]
  - Feeling cold [Not Recovered/Not Resolved]
  - Bursitis [Unknown]
  - Headache [Not Recovered/Not Resolved]
  - Tooth disorder [Not Recovered/Not Resolved]
  - Movement disorder [Unknown]
  - Nausea [Recovered/Resolved]
  - Neuralgia [Recovering/Resolving]
  - Asthenia [Unknown]
  - Fatigue [Recovered/Resolved]
  - Hypertension [Not Recovered/Not Resolved]
  - Pulmonary pain [Not Recovered/Not Resolved]
  - Arthritis [Recovered/Resolved]
  - Drug ineffective [Unknown]
  - Dizziness [Recovered/Resolved]
  - Sciatica [Unknown]
  - Spinal pain [Unknown]
  - Hypoaesthesia [Not Recovered/Not Resolved]
  - Cough [Not Recovered/Not Resolved]
  - Quality of life decreased [Not Recovered/Not Resolved]
  - Malaise [Unknown]
  - Rheumatoid arthritis [Not Recovered/Not Resolved]
  - Pain [Not Recovered/Not Resolved]
  - Blood pressure inadequately controlled [Recovered/Resolved]
  - Depressed mood [Recovering/Resolving]
  - Urinary tract infection [Unknown]

NARRATIVE: CASE EVENT DATE: 201102
